FAERS Safety Report 19759715 (Version 2)
Quarter: 2022Q3

REPORT INFORMATION
  Report Type: Spontaneous
  Country: CA (occurrence: CA)
  Receive Date: 20210830
  Receipt Date: 20220711
  Transmission Date: 20221027
  Serious: Yes (Life-Threatening, Hospitalization, Other)
  Sender: FDA-Public Use
  Company Number: CA-AUROBINDO-AUR-APL-2021-036566

PATIENT
  Age: 36 Year
  Sex: Female

DRUGS (17)
  1. PREGABALIN [Suspect]
     Active Substance: PREGABALIN
     Indication: Musculoskeletal pain
     Dosage: 150 MILLIGRAM
     Route: 048
  2. PREGABALIN [Suspect]
     Active Substance: PREGABALIN
     Indication: Pain
  3. TRAMADOL HYDROCHLORIDE [Suspect]
     Active Substance: TRAMADOL HYDROCHLORIDE
     Indication: Musculoskeletal pain
     Dosage: 187.5 MILLIGRAM
     Route: 048
  4. TRAMADOL HYDROCHLORIDE [Suspect]
     Active Substance: TRAMADOL HYDROCHLORIDE
     Indication: Back pain
     Dosage: 187.5 MILLIGRAM
     Route: 048
  5. TRAMADOL HYDROCHLORIDE [Suspect]
     Active Substance: TRAMADOL HYDROCHLORIDE
     Indication: Pain
  6. ACETAMINOPHEN [Suspect]
     Active Substance: ACETAMINOPHEN
     Indication: Musculoskeletal pain
     Dosage: 325 MILLIGRAM
     Route: 048
  7. ACETAMINOPHEN [Suspect]
     Active Substance: ACETAMINOPHEN
     Indication: Back pain
     Dosage: 325 MILLIGRAM
     Route: 048
  8. ACETAMINOPHEN [Suspect]
     Active Substance: ACETAMINOPHEN
     Indication: Pain
  9. AMITRIPTYLINE HYDROCHLORIDE\PERPHENAZINE [Suspect]
     Active Substance: AMITRIPTYLINE HYDROCHLORIDE\PERPHENAZINE
     Indication: Musculoskeletal pain
     Dosage: 10 MILLIGRAM
     Route: 065
  10. AMITRIPTYLINE HYDROCHLORIDE\PERPHENAZINE [Suspect]
     Active Substance: AMITRIPTYLINE HYDROCHLORIDE\PERPHENAZINE
     Indication: Back pain
     Dosage: 10 MILLIGRAM
     Route: 065
  11. AMITRIPTYLINE HYDROCHLORIDE\PERPHENAZINE [Suspect]
     Active Substance: AMITRIPTYLINE HYDROCHLORIDE\PERPHENAZINE
     Indication: Pain
  12. DULOXETINE [Suspect]
     Active Substance: DULOXETINE
     Indication: Musculoskeletal pain
     Dosage: 60 MILLIGRAM
     Route: 048
  13. DULOXETINE [Suspect]
     Active Substance: DULOXETINE
     Indication: Back pain
     Dosage: 60 MILLIGRAM
     Route: 048
  14. DULOXETINE [Suspect]
     Active Substance: DULOXETINE
     Indication: Pain
  15. TRIAZOLAM [Suspect]
     Active Substance: TRIAZOLAM
     Indication: Musculoskeletal pain
     Dosage: 0.25 MILLIGRAM, ONCE A DAY
     Route: 048
  16. TRIAZOLAM [Suspect]
     Active Substance: TRIAZOLAM
     Indication: Back pain
     Dosage: 0.25 MILLIGRAM
     Route: 048
  17. TRIAZOLAM [Suspect]
     Active Substance: TRIAZOLAM
     Indication: Pain

REACTIONS (2)
  - Serotonin syndrome [Recovered/Resolved]
  - Labelled drug-drug interaction issue [Recovered/Resolved]
